FAERS Safety Report 16026654 (Version 2)
Quarter: 2019Q1

REPORT INFORMATION
  Report Type: Spontaneous
  Country: US (occurrence: US)
  Receive Date: 20190303
  Receipt Date: 20190318
  Transmission Date: 20190418
  Serious: No
  Sender: FDA-Public Use
  Company Number: US-JNJFOC-20190225345

PATIENT

DRUGS (4)
  1. METHOTREXATE. [Concomitant]
     Active Substance: METHOTREXATE
     Route: 050
     Dates: start: 201404, end: 201405
  2. REMICADE [Suspect]
     Active Substance: INFLIXIMAB
     Indication: RHEUMATOID ARTHRITIS
     Route: 042
     Dates: start: 201401, end: 201511
  3. SIMPONI ARIA [Concomitant]
     Active Substance: GOLIMUMAB
     Route: 042
     Dates: start: 201401, end: 201802
  4. METHOTREXATE. [Concomitant]
     Active Substance: METHOTREXATE
     Route: 048
     Dates: start: 201404, end: 201406

REACTIONS (1)
  - Drug ineffective [Unknown]
